FAERS Safety Report 16580893 (Version 1)
Quarter: 2019Q3

REPORT INFORMATION
  Report Type: Spontaneous
  Country: US (occurrence: US)
  Receive Date: 20190716
  Receipt Date: 20190716
  Transmission Date: 20191004
  Serious: No
  Sender: FDA-Public Use
  Company Number: US-TEVA-2019-US-1077855

PATIENT
  Age: 36 Year
  Sex: Female

DRUGS (1)
  1. HYDROCHLOROTHIAZIDE. [Suspect]
     Active Substance: HYDROCHLOROTHIAZIDE
     Indication: HYPERTENSION
     Dosage: INITIATED ABOUT 1-2 MONTHS PRIOR TO THE APPEARANCE OF RASH
     Route: 065

REACTIONS (2)
  - Photosensitivity reaction [Unknown]
  - Lichenoid keratosis [Unknown]
